FAERS Safety Report 8743308 (Version 3)
Quarter: 2012Q4

REPORT INFORMATION
  Report Type: Report from Study
  Country: DE (occurrence: SE)
  Receive Date: 20120824
  Receipt Date: 20120914
  Transmission Date: 20130627
  Serious: Yes (Death, Hospitalization)
  Sender: FDA-Public Use
  Company Number: SE-BRISTOL-MYERS SQUIBB COMPANY-16874521

PATIENT
  Age: 64 Year
  Sex: Male

DRUGS (4)
  1. ERBITUX [Suspect]
     Indication: HEAD AND NECK CANCER
     Dosage: for 7wks
     Dates: start: 20120611, end: 20120716
  2. CISPLATIN [Suspect]
     Indication: HEAD AND NECK CANCER
     Dates: start: 20120430, end: 20120716
  3. DOCETAXEL [Suspect]
     Indication: HEAD AND NECK CANCER
     Dates: start: 20120430, end: 20120716
  4. 5-FLUOROURACIL [Suspect]
     Indication: HEAD AND NECK CANCER
     Dates: start: 20120430, end: 20120716

REACTIONS (1)
  - Pulmonary fibrosis [Fatal]
